FAERS Safety Report 5357704-6 (Version None)
Quarter: 2007Q2

REPORT INFORMATION
  Report Type: 
  Country: None (occurrence: None)
  Receive Date: 20070614
  Receipt Date: 20070605
  Transmission Date: 20071010
  Serious: Yes (Hospitalization)
  Sender: FDA-Public Use
  Company Number: FR-SANOFI-SYNTHELABO-A02200501788

PATIENT
  Age: 26 Year
  Sex: Male
  Weight: 50 kg

DRUGS (5)
  1. SERESTA [Concomitant]
     Route: 048
  2. DEROXAT [Concomitant]
     Indication: DEPRESSION
     Route: 048
  3. METHADONE HCL [Concomitant]
     Indication: DRUG DEPENDENCE
     Route: 048
  4. SUBUTEX [Concomitant]
     Indication: DRUG DEPENDENCE
     Dosage: UNK
     Route: 048
  5. STILNOX [Suspect]
     Indication: DRUG DEPENDENCE
     Route: 013
     Dates: start: 20050529, end: 20050529

REACTIONS (2)
  - INTENTIONAL DRUG MISUSE [None]
  - PERIPHERAL ISCHAEMIA [None]
